FAERS Safety Report 22152233 (Version 1)
Quarter: 2023Q1

REPORT INFORMATION
  Report Type: Report from Study
  Country: GB (occurrence: GB)
  Receive Date: 20230329
  Receipt Date: 20230329
  Transmission Date: 20230417
  Serious: Yes (Other)
  Sender: FDA-Public Use
  Company Number: GB-TAKEDA-2023TUS031179

PATIENT

DRUGS (4)
  1. VEDOLIZUMAB [Suspect]
     Active Substance: VEDOLIZUMAB
     Indication: Product used for unknown indication
     Dosage: UNK
     Route: 065
  2. METHOTREXATE [Suspect]
     Active Substance: METHOTREXATE
     Indication: Product used for unknown indication
     Dosage: UNK
     Route: 065
  3. ADALIMUMAB [Suspect]
     Active Substance: ADALIMUMAB
     Indication: Crohn^s disease
     Dosage: UNK
     Route: 058
  4. USTEKINUMAB [Suspect]
     Active Substance: USTEKINUMAB
     Indication: Product used for unknown indication
     Dosage: 90 MILLIGRAM
     Route: 065

REACTIONS (11)
  - Cervical dysplasia [Unknown]
  - Groin abscess [Unknown]
  - Sepsis [Unknown]
  - Inflammation [Unknown]
  - Drug ineffective [Unknown]
  - Vitamin D deficiency [Unknown]
  - Sleep disorder [Unknown]
  - Nodule [Unknown]
  - Drug intolerance [Unknown]
  - Lymphadenopathy [Unknown]
  - Fatigue [Unknown]
